FAERS Safety Report 25127405 (Version 2)
Quarter: 2025Q4

REPORT INFORMATION
  Report Type: Spontaneous
  Country: US (occurrence: US)
  Receive Date: 20250327
  Receipt Date: 20251106
  Transmission Date: 20260117
  Serious: Yes (Other)
  Sender: COOPERSURGICAL
  Company Number: US-COOPERSURGICAL, INC.-2025CPS002089

PATIENT
  Sex: Female
  Weight: 54.422 kg

DRUGS (1)
  1. PARAGARD T 380A [Suspect]
     Active Substance: COPPER
     Indication: Contraception
     Dosage: UNK
     Route: 015
     Dates: start: 20120921, end: 20221109

REACTIONS (44)
  - Reproductive complication associated with device [Unknown]
  - Device allergy [Unknown]
  - Salpingoplasty [Recovered/Resolved]
  - Surgery [Recovered/Resolved]
  - Device breakage [Recovered/Resolved]
  - Foreign body in reproductive tract [Recovered/Resolved]
  - Complication of device removal [Recovered/Resolved]
  - Embedded device [Recovered/Resolved]
  - Pelvic inflammatory disease [Unknown]
  - Migraine [Unknown]
  - Emotional distress [Not Recovered/Not Resolved]
  - Mental disorder [Unknown]
  - Paranoia [Unknown]
  - Stress [Unknown]
  - Anxiety [Recovered/Resolved]
  - Depression [Recovered/Resolved]
  - Self esteem decreased [Not Recovered/Not Resolved]
  - Sexual dysfunction [Not Recovered/Not Resolved]
  - Staphylococcal infection [Recovered/Resolved]
  - Bacterial infection [Unknown]
  - Endometriosis [Recovered/Resolved]
  - Peritoneal lesion [Recovered/Resolved]
  - Insomnia [Not Recovered/Not Resolved]
  - Disturbance in attention [Not Recovered/Not Resolved]
  - Hormone level abnormal [Unknown]
  - Progesterone decreased [Recovered/Resolved]
  - Dehydroepiandrosterone decreased [Recovered/Resolved]
  - Pelvic fluid collection [Recovered/Resolved]
  - Pelvic adhesions [Recovered/Resolved]
  - Coital bleeding [Unknown]
  - Vaginal odour [Recovered/Resolved]
  - Vulvovaginal pain [Unknown]
  - Adnexa uteri pain [Recovered/Resolved]
  - Micturition urgency [Unknown]
  - Cortisol decreased [Recovered/Resolved]
  - Pelvic pain [Recovered/Resolved]
  - Abnormal uterine bleeding [Not Recovered/Not Resolved]
  - Pain [Not Recovered/Not Resolved]
  - Dyspareunia [Unknown]
  - Menstruation irregular [Unknown]
  - Intermenstrual bleeding [Unknown]
  - Vaginal discharge [Recovered/Resolved]
  - Dysmenorrhoea [Unknown]
  - Pelvic discomfort [Unknown]

NARRATIVE: CASE EVENT DATE: 20220101
